FAERS Safety Report 7974818-2 (Version None)
Quarter: 2011Q4

REPORT INFORMATION
  Report Type: 
  Country: None (occurrence: None)
  Receive Date: 20111213
  Receipt Date: 20111209
  Transmission Date: 20120403
  Serious: Yes (Death)
  Sender: FDA-Public Use
  Company Number: AU-ASTRAZENECA-2011SE74562

PATIENT
  Age: 37 Year
  Sex: Male

DRUGS (2)
  1. LOVAZA [Concomitant]
  2. SEROQUEL [Suspect]
     Route: 048

REACTIONS (1)
  - COMPLETED SUICIDE [None]
